FAERS Safety Report 14769862 (Version 3)
Quarter: 2018Q3

REPORT INFORMATION
  Report Type: Spontaneous
  Country: JP (occurrence: JP)
  Receive Date: 20180417
  Receipt Date: 20180912
  Transmission Date: 20181010
  Serious: No
  Sender: FDA-Public Use
  Company Number: JP-ABBVIE-18K-087-2321907-00

PATIENT
  Sex: Male

DRUGS (4)
  1. HUMIRA [Suspect]
     Active Substance: ADALIMUMAB
     Indication: PSORIASIS
     Route: 058
     Dates: start: 20140610
  2. HUMIRA [Suspect]
     Active Substance: ADALIMUMAB
     Route: 058
  3. OLOPATADINE HYDROCHLORIDE. [Concomitant]
     Active Substance: OLOPATADINE HYDROCHLORIDE
     Indication: PRODUCT USED FOR UNKNOWN INDICATION
     Dosage: FREQUENCY: WHEN THE ITCHING AND CUTANEOUS SYMPTOM DEVELOPED
  4. MAXACALCITOL BETAMETHASONE BUTYRATE PROPIONATE MIXTURE [Concomitant]
     Indication: PRODUCT USED FOR UNKNOWN INDICATION
     Dosage: FREQUENCY: WHEN THE ITCHING AND CUTANEOUS SYMPTOM DEVELOPED

REACTIONS (1)
  - Cell marker increased [Recovering/Resolving]
